FAERS Safety Report 9009725 (Version 2)
Quarter: 2013Q1

REPORT INFORMATION
  Report Type: Spontaneous
  Country: US (occurrence: US)
  Receive Date: 20130110
  Receipt Date: 20130218
  Transmission Date: 20140127
  Serious: Yes (Hospitalization)
  Sender: FDA-Public Use
  Company Number: US-BAYER-2013-003248

PATIENT
  Age: 45 Year
  Sex: Female
  Weight: 86.17 kg

DRUGS (6)
  1. YASMIN [Suspect]
     Indication: PROPHYLAXIS
     Dosage: UNK
     Dates: start: 20071005, end: 200807
  2. YASMIN [Suspect]
     Indication: CONTRACEPTION
  3. LIPITOR [Concomitant]
     Indication: BLOOD CHOLESTEROL INCREASED
  4. SYNTHROID [Concomitant]
     Indication: THYROID DISORDER
     Dosage: 175MCG
     Dates: start: 19980904, end: 20120329
  5. LEXAPRO [Concomitant]
     Dosage: 10 MG, UNK
     Dates: start: 20060216, end: 20120216
  6. NSAID^S [Concomitant]
     Dosage: UNK
     Dates: start: 20080711

REACTIONS (5)
  - Pulmonary embolism [None]
  - Deep vein thrombosis [None]
  - Injury [None]
  - Pain [None]
  - Pain [None]
